FAERS Safety Report 8361513-3 (Version None)
Quarter: 2012Q2

REPORT INFORMATION
  Report Type: 
  Country: None (occurrence: None)
  Receive Date: 20120515
  Receipt Date: 20120503
  Transmission Date: 20120825
  Serious: No
  Sender: FDA-Public Use
  Company Number: CA-ELI_LILLY_AND_COMPANY-CA201202003501

PATIENT
  Sex: Female

DRUGS (15)
  1. CYMBALTA [Suspect]
     Indication: DEPRESSION
     Dosage: 30 MG, UNKNOWN
     Route: 048
     Dates: start: 20110407
  2. CESAMET [Concomitant]
     Dosage: 1 MG, EACH EVENING
  3. CYMBALTA [Suspect]
     Dosage: 90 MG, QD
     Route: 048
  4. COLACE [Concomitant]
     Dosage: 100 MG, BID
  5. CYMBALTA [Suspect]
     Dosage: 60 MG, QD
     Route: 048
  6. CYMBALTA [Suspect]
     Dosage: 60 MG, QD
     Route: 048
  7. CYMBALTA [Suspect]
     Dosage: 30 MG, QD
     Route: 048
  8. SYNTHROID [Concomitant]
  9. CYMBALTA [Suspect]
     Dosage: 90 MG, QD
     Route: 048
  10. LYRICA [Concomitant]
     Dosage: 225 MG, EACH MORNING
  11. LYRICA [Concomitant]
     Dosage: 300 MG, EACH EVENING
  12. CLONAZEPAM [Concomitant]
     Dosage: 1.5 MG, QD
  13. OXYCONTIN [Concomitant]
     Dosage: 6 MG, QD
  14. CYMBALTA [Suspect]
     Dosage: 60 MG, QD
     Route: 048
  15. CYMBALTA [Suspect]
     Dosage: 60 MG, QD
     Route: 048

REACTIONS (6)
  - GAMMA-GLUTAMYLTRANSFERASE INCREASED [None]
  - BLOOD BILIRUBIN INCREASED [None]
  - BLOOD ALKALINE PHOSPHATASE INCREASED [None]
  - ALANINE AMINOTRANSFERASE INCREASED [None]
  - BILIRUBIN CONJUGATED INCREASED [None]
  - ASPARTATE AMINOTRANSFERASE INCREASED [None]
